FAERS Safety Report 9891228 (Version 1)
Quarter: 2014Q1

REPORT INFORMATION
  Report Type: Spontaneous
  Country: US (occurrence: None)
  Receive Date: 20140211
  Receipt Date: 20140211
  Transmission Date: 20141002
  Serious: Yes (Other)
  Sender: FDA-Public Use
  Company Number: None

PATIENT
  Sex: 0

DRUGS (1)
  1. ANDROGEL [Suspect]

REACTIONS (4)
  - Blood testosterone decreased [None]
  - Fatigue [None]
  - Deep vein thrombosis [None]
  - Pulmonary embolism [None]
